FAERS Safety Report 8254657-8 (Version None)
Quarter: 2012Q1

REPORT INFORMATION
  Report Type: 
  Country: None (occurrence: None)
  Receive Date: 20120329
  Receipt Date: 20120123
  Transmission Date: 20120608
  Serious: No
  Sender: FDA-Public Use
  Company Number: 2012P1003093

PATIENT
  Age: 73 Year
  Sex: Female
  Weight: 90.7194 kg

DRUGS (8)
  1. GLIPIZIDE [Concomitant]
  2. LIPITOR [Concomitant]
  3. INDAPAMIDE [Concomitant]
  4. CALCIUM + VITAMIN D [Concomitant]
  5. MULTI-VITAMINS [Concomitant]
  6. NYSTATIN [Suspect]
  7. FISH OIL [Concomitant]
  8. NYSTATIN [Suspect]
     Indication: FUNGAL INFECTION
     Dosage: BID; TOP
     Route: 061
     Dates: start: 20120116, end: 20120120

REACTIONS (7)
  - FUNGAL INFECTION [None]
  - PRODUCT SUBSTITUTION ISSUE [None]
  - PRURITUS [None]
  - BURNING SENSATION [None]
  - RASH [None]
  - CONDITION AGGRAVATED [None]
  - DRUG INEFFECTIVE [None]
